FAERS Safety Report 6106979-4 (Version None)
Quarter: 2009Q1

REPORT INFORMATION
  Report Type: 
  Country: None (occurrence: None)
  Receive Date: 20090309
  Receipt Date: 20090303
  Transmission Date: 20090719
  Serious: Yes (Hospitalization)
  Sender: FDA-Public Use
  Company Number: US-JNJFOC-20090301152

PATIENT
  Sex: Female
  Weight: 76.2 kg

DRUGS (8)
  1. DURAGESIC-100 [Suspect]
     Route: 062
  2. DURAGESIC-100 [Suspect]
     Indication: BACK PAIN
     Route: 062
  3. LASIX [Concomitant]
     Indication: BLOOD PRESSURE
     Dosage: 1 IN AM AND 1 IN PM
     Route: 048
  4. COUMADIN [Concomitant]
     Indication: ANTICOAGULANT THERAPY
     Route: 048
  5. MOBIC [Concomitant]
     Indication: ARTHRITIS
     Dosage: 1 IN AM AND 1 IN PM
     Route: 048
  6. LIPITOR [Concomitant]
     Indication: BLOOD CHOLESTEROL
     Route: 048
  7. ASPIRIN [Concomitant]
     Indication: CARDIAC DISORDER
     Route: 048
  8. MULTI-VITAMIN [Concomitant]
     Indication: ROUTINE HEALTH MAINTENANCE
     Route: 048

REACTIONS (7)
  - BLOOD PRESSURE ABNORMAL [None]
  - BODY HEIGHT DECREASED [None]
  - DYSPEPSIA [None]
  - DYSPNOEA [None]
  - IRRITABLE BOWEL SYNDROME [None]
  - NAUSEA [None]
  - SINUS DISORDER [None]
